FAERS Safety Report 6151278-8 (Version None)
Quarter: 2009Q2

REPORT INFORMATION
  Report Type: 
  Country: None (occurrence: None)
  Receive Date: 20090408
  Receipt Date: 20090320
  Transmission Date: 20091009
  Serious: Yes (Hospitalization)
  Sender: FDA-Public Use
  Company Number: PVS13-20-MAR-2009

PATIENT
  Age: 49 Year
  Sex: Female
  Weight: 50 kg

DRUGS (13)
  1. SEROMYCIN [Suspect]
     Indication: PULMONARY TUBERCULOSIS
     Dosage: 750 MG DAILY, 1/D, ORAL
     Route: 048
     Dates: start: 20080507, end: 20080514
  2. ETHIONAMIDE (ETHIONAMDE) [Concomitant]
  3. PYRAZINAMIDE [Concomitant]
  4. ETHAMBUTOL HCL [Concomitant]
  5. CAPREOMYCIN (CAPREOMYCIN) [Concomitant]
  6. PAS (PARA-AMINOSALICYLIC ACID) [Concomitant]
  7. ...... [Concomitant]
  8. .... [Concomitant]
  9. ..... [Concomitant]
  10. ..... [Concomitant]
  11. ..... [Concomitant]
  12. ..... [Concomitant]
  13. ..... [Concomitant]

REACTIONS (2)
  - CONFUSIONAL STATE [None]
  - PSYCHOTIC DISORDER [None]
